FAERS Safety Report 21472018 (Version 1)
Quarter: 2022Q4

REPORT INFORMATION
  Report Type: Spontaneous
  Country: US (occurrence: US)
  Receive Date: 20221018
  Receipt Date: 20221018
  Transmission Date: 20230113
  Serious: Yes (Hospitalization)
  Sender: FDA-Public Use
  Company Number: US-NOVARTISPH-NVSC2022US232045

PATIENT
  Age: 66 Year
  Sex: Female

DRUGS (2)
  1. DIGOXIN [Suspect]
     Active Substance: DIGOXIN
     Indication: Atrial fibrillation
     Dosage: 0.125 MG, QD
     Route: 065
  2. DIGOXIN [Suspect]
     Active Substance: DIGOXIN
     Dosage: 0.0625 MG, QD
     Route: 065

REACTIONS (1)
  - Toxicity to various agents [Unknown]
